FAERS Safety Report 8778814 (Version 2)
Quarter: 2012Q4

REPORT INFORMATION
  Report Type: 
  Country: US (occurrence: US)
  Receive Date: 20120912
  Receipt Date: 20121004
  Transmission Date: 20130627
  Serious: Yes (Other)
  Sender: FDA-Public Use
  Company Number: US-PFIZER INC-2012224099

PATIENT
  Age: 49 Year
  Sex: Female
  Weight: 79 kg

DRUGS (6)
  1. ZOLOFT [Suspect]
     Indication: PAIN
     Dosage: UNK
     Dates: start: 2000
  2. ZOLOFT [Suspect]
     Indication: MAJOR DEPRESSION
  3. VENLAFAXINE HYDROCHLORIDE [Suspect]
     Indication: PAIN
     Dosage: UNK
  4. VENLAFAXINE HYDROCHLORIDE [Suspect]
     Indication: MAJOR DEPRESSION
  5. CYMBALTA [Suspect]
     Indication: PAIN
     Dosage: 60 mg, daily
  6. CYMBALTA [Suspect]
     Indication: MAJOR DEPRESSION
     Dosage: 60 mg, daily
     Dates: end: 201208

REACTIONS (5)
  - Depression [Unknown]
  - Visual impairment [Unknown]
  - Eye disorder [Unknown]
  - Nervousness [Unknown]
  - Feeling abnormal [Unknown]
